FAERS Safety Report 4952524-6 (Version None)
Quarter: 2006Q1

REPORT INFORMATION
  Report Type: 
  Country: None (occurrence: None)
  Receive Date: 20060323
  Receipt Date: 20050414
  Transmission Date: 20060701
  Serious: Yes (Hospitalization)
  Sender: FDA-Public Use
  Company Number: US-MERCK-0504USA02602

PATIENT
  Sex: Female
  Weight: 82 kg

DRUGS (2)
  1. VIOXX [Suspect]
     Indication: ARTHRITIS
     Route: 048
     Dates: start: 19990101, end: 20030101
  2. [THERAPY UNSPECIFIED] [Concomitant]
     Indication: HYPERTENSION
     Route: 065

REACTIONS (6)
  - ARTERIOSCLEROSIS [None]
  - HERNIA REPAIR [None]
  - HIATUS HERNIA [None]
  - HYPERTENSION [None]
  - POLYTRAUMATISM [None]
  - THROMBOSIS [None]
